FAERS Safety Report 7472727-9 (Version None)
Quarter: 2011Q2

REPORT INFORMATION
  Report Type: 
  Country: None (occurrence: None)
  Receive Date: 20110511
  Receipt Date: 20110504
  Transmission Date: 20111010
  Serious: Yes (Death)
  Sender: FDA-Public Use
  Company Number: HU-PFIZER INC-2011096922

PATIENT
  Sex: Female

DRUGS (3)
  1. BORTEZOMIB [Suspect]
     Indication: PLASMACYTOMA
  2. DOXORUBICIN HCL [Suspect]
     Indication: PLASMACYTOMA
  3. DEXAMETHASONE [Suspect]
     Indication: PLASMACYTOMA

REACTIONS (2)
  - PNEUMONIA [None]
  - SEPSIS [None]
